FAERS Safety Report 7569414-5 (Version None)
Quarter: 2011Q2

REPORT INFORMATION
  Report Type: 
  Country: None (occurrence: None)
  Receive Date: 20110623
  Receipt Date: 20110610
  Transmission Date: 20111010
  Serious: Yes (Other)
  Sender: FDA-Public Use
  Company Number: DK-MYLANLABS-2011S1012061

PATIENT
  Age: 41 Year
  Sex: Female

DRUGS (1)
  1. NAPROXEN [Suspect]
     Indication: ANALGESIC THERAPY
     Route: 048
     Dates: start: 20110112, end: 20110113

REACTIONS (4)
  - LOCAL SWELLING [None]
  - EYE SWELLING [None]
  - DYSPHAGIA [None]
  - ERYTHEMA [None]
